FAERS Safety Report 5847882-4 (Version None)
Quarter: 2008Q3

REPORT INFORMATION
  Report Type: 
  Country: None (occurrence: None)
  Receive Date: 20080818
  Receipt Date: 20080812
  Transmission Date: 20090109
  Serious: Yes (Other)
  Sender: FDA-Public Use
  Company Number: US-BAYER-200827364NA

PATIENT
  Age: 65 Year
  Sex: Female
  Weight: 107 kg

DRUGS (36)
  1. CLIMARA [Suspect]
     Indication: MENOPAUSE
     Route: 062
     Dates: start: 19910101, end: 20020201
  2. CLIMARA [Suspect]
     Route: 062
     Dates: start: 19961112
  3. PREMARIN [Suspect]
     Dates: start: 19910101, end: 20020201
  4. PROVERA [Suspect]
     Indication: MENOPAUSE
     Dates: start: 19950101, end: 20020101
  5. PROVERA [Suspect]
     Dates: start: 19920506, end: 19930615
  6. ESTRADERM [Suspect]
     Route: 062
     Dates: start: 19910101, end: 20020201
  7. MEDROXYPROGESTERONE [Suspect]
     Dates: start: 19961112, end: 20020125
  8. MEDROXYPROGESTERONE [Suspect]
     Dates: start: 19931004, end: 19961014
  9. ORAL CONTRACEPTIVE NOS [Concomitant]
     Route: 048
     Dates: start: 19630101, end: 19631001
  10. ZOCOR [Concomitant]
     Indication: BLOOD CHOLESTEROL INCREASED
     Route: 048
  11. LISINOPRIL [Concomitant]
     Indication: HYPERTENSION
     Route: 048
  12. MEVACOR [Concomitant]
     Route: 048
  13. HYDROCHLOROTHIAZIDE [Concomitant]
     Indication: DRUG USE FOR UNKNOWN INDICATION
     Route: 048
     Dates: start: 20001127
  14. LOVASTATIN [Concomitant]
     Route: 048
  15. PIROXICAM [Concomitant]
     Route: 048
  16. OXYBUTYNIN [Concomitant]
     Route: 048
  17. HYDROCODONE BITARTRATE [Concomitant]
     Route: 048
  18. CATAPRES [Concomitant]
  19. MOTRIN [Concomitant]
     Route: 048
  20. CEPHALEXIN [Concomitant]
     Route: 048
  21. IMIPRAMINE HCL [Concomitant]
     Route: 048
  22. PROPOXYPHENE [Concomitant]
  23. CARISOPRODOL [Concomitant]
     Route: 048
  24. IBUPROFEN [Concomitant]
     Route: 048
  25. ERYTHROMYCIN [Concomitant]
     Route: 048
  26. TAGAMET [Concomitant]
     Route: 048
  27. ZOVIRAX [Concomitant]
     Route: 048
  28. AMITRIPTYLINE HCL [Concomitant]
     Route: 048
  29. ROXICET [Concomitant]
     Route: 048
  30. VENTOLIN [Concomitant]
  31. CYCLOBENZAPRINE HCL [Concomitant]
     Route: 048
  32. AZMACORT [Concomitant]
  33. QVAR 40 [Concomitant]
  34. ALBUTEROL [Concomitant]
  35. HYDROCHLOROTHIAZIDE [Concomitant]
     Route: 048
  36. NAPROXEN [Concomitant]
     Route: 048

REACTIONS (2)
  - BREAST CANCER [None]
  - LUNG NEOPLASM MALIGNANT [None]
